FAERS Safety Report 6025804-3 (Version None)
Quarter: 2008Q4

REPORT INFORMATION
  Report Type: 
  Country: None (occurrence: None)
  Receive Date: 20081224
  Receipt Date: 20081215
  Transmission Date: 20090506
  Serious: Yes (Other)
  Sender: FDA-Public Use
  Company Number: 2008US003440

PATIENT

DRUGS (2)
  1. PROGRAF [Suspect]
     Indication: LUPUS NEPHRITIS
  2. MYCOPHENOLATE MOFETIL [Suspect]
     Indication: LUPUS NEPHRITIS

REACTIONS (1)
  - DIABETIC KETOACIDOSIS [None]
